FAERS Safety Report 5502328-0 (Version None)
Quarter: 2007Q4

REPORT INFORMATION
  Report Type: 
  Country: None (occurrence: None)
  Receive Date: 20071030
  Receipt Date: 20071015
  Transmission Date: 20080405
  Serious: Yes (Hospitalization)
  Sender: FDA-Public Use
  Company Number: US-SHR-US-2007-038989

PATIENT
  Age: 49 Year
  Sex: Female
  Weight: 77.098 kg

DRUGS (8)
  1. BETASERON [Suspect]
     Indication: RELAPSING-REMITTING MULTIPLE SCLEROSIS
     Dosage: 8 MIU, EVERY 2D
     Route: 058
     Dates: start: 20000701, end: 20070701
  2. TYSABRI [Concomitant]
     Indication: RELAPSING-REMITTING MULTIPLE SCLEROSIS
     Dosage: UNK, 1X/MONTH
     Route: 042
     Dates: start: 20070830
  3. LEXAPRO [Concomitant]
     Indication: STRESS
     Dates: start: 20040101
  4. WELLBUTRIN [Concomitant]
     Indication: STRESS
     Dates: start: 20040101
  5. ACIPHEX [Concomitant]
  6. DAYPRO [Concomitant]
     Dates: start: 20050101
  7. PERCOCET [Concomitant]
     Indication: ROTATOR CUFF REPAIR
     Dates: start: 20070822, end: 20070829
  8. ENABLEX [Concomitant]

REACTIONS (8)
  - FALL [None]
  - GASTROOESOPHAGEAL REFLUX DISEASE [None]
  - HYPERTONIC BLADDER [None]
  - HYPOAESTHESIA FACIAL [None]
  - MULTIPLE SCLEROSIS [None]
  - PAIN IN EXTREMITY [None]
  - ROTATOR CUFF SYNDROME [None]
  - STRESS [None]
